FAERS Safety Report 7546328-8 (Version None)
Quarter: 2011Q2

REPORT INFORMATION
  Report Type: 
  Country: None (occurrence: None)
  Receive Date: 20110607
  Receipt Date: 20110523
  Transmission Date: 20111010
  Serious: Yes (Hospitalization)
  Sender: FDA-Public Use
  Company Number: DSM-2011-00562

PATIENT
  Age: 95 Year
  Sex: Female

DRUGS (7)
  1. OLMESARTAN MEDOXOMIL [Suspect]
     Indication: HYPERTENSION
     Dosage: 10 MG, ORAL
     Route: 048
     Dates: start: 20100107, end: 20100505
  2. VITAMINS NOS (VITAMINS NOS) (VITAMINS NOS) [Concomitant]
  3. CITALOPRAM 1 A PHARMA (CITALOPRAM HYDROBROMIDE) (CITALOPRAM HYDROBROMI [Concomitant]
  4. ALPRAZOLAM [Concomitant]
  5. DIFOSFONAL (CLODRONATE DISODIUM) (CLODRAONATE DISOIUM) [Concomitant]
  6. PANTORC (PANTOPRAZOLE SODIUM) (PANTOPRAZOLE SODIUM) [Concomitant]
  7. CARDIRENE (ACETYLSALICYLATE LYSINE) (ACETYLSALICYLATE LYSINE) [Concomitant]

REACTIONS (3)
  - HYPERKALAEMIA [None]
  - ELECTROCARDIOGRAM REPOLARISATION ABNORMALITY [None]
  - TROPONIN INCREASED [None]
